FAERS Safety Report 8880407 (Version 1)
Quarter: 2012Q4

REPORT INFORMATION
  Report Type: 
  Country: CH (occurrence: CH)
  Receive Date: 20121031
  Receipt Date: 20121031
  Transmission Date: 20130627
  Serious: Yes (Other)
  Sender: FDA-Public Use
  Company Number: CH-ASTRAZENECA-2012SE81887

PATIENT
  Sex: Female
  Weight: 2.9 kg

DRUGS (7)
  1. SEROQUEL [Suspect]
     Route: 064
  2. ZOLPIDEM [Suspect]
     Route: 064
  3. CITALOPRAM [Suspect]
     Route: 064
  4. TEMESTA [Suspect]
     Route: 064
     Dates: end: 201107
  5. ANXIOLIT [Suspect]
     Route: 064
  6. TRITTICO [Suspect]
     Route: 064
  7. DEPAKINE [Suspect]
     Route: 064
     Dates: end: 201107

REACTIONS (2)
  - Foetal growth restriction [Recovered/Resolved]
  - Maternal drugs affecting foetus [None]
